FAERS Safety Report 4307139-X (Version None)
Quarter: 2004Q1

REPORT INFORMATION
  Report Type: 
  Country: None (occurrence: None)
  Receive Date: 20040225
  Receipt Date: 20040216
  Transmission Date: 20041129
  Serious: Yes (Death)
  Sender: FDA-Public Use
  Company Number: PH-JNJFOC-20040203093

PATIENT
  Age: 45 Year
  Sex: Female

DRUGS (5)
  1. ACETAMINOPHEN AND TRAMADOL HCL [Suspect]
     Indication: NEUROPATHIC PAIN
     Dosage: 1 DOSE(S), 1 IN 12 HOUR, ORAL
     Route: 048
     Dates: start: 20040110, end: 20040119
  2. PREDNISONE [Concomitant]
  3. CALCIUM CARBONATE (CALCIUM CARBONATE) [Concomitant]
  4. ENALAPRIL MALEATE [Concomitant]
  5. CELECOXIB (CELECOXIB) [Concomitant]

REACTIONS (3)
  - DYSPNOEA [None]
  - RESPIRATORY FAILURE [None]
  - SEPSIS [None]
